FAERS Safety Report 9373422 (Version 2)
Quarter: 2013Q3

REPORT INFORMATION
  Report Type: Spontaneous
  Country: JP (occurrence: JP)
  Receive Date: 20130627
  Receipt Date: 20130711
  Transmission Date: 20140515
  Serious: No
  Sender: FDA-Public Use
  Company Number: JP-B.I. PHARMACEUTICALS,INC./RIDGEFIELD-2013-BI-18105NB

PATIENT
  Age: 72 Year
  Sex: Male
  Weight: 63 kg

DRUGS (4)
  1. TRAZENTA [Suspect]
     Dosage: 5 MG
     Route: 065
     Dates: start: 20120808, end: 20130619
  2. NORVASC [Concomitant]
     Dosage: 5 MG
     Route: 065
     Dates: start: 20111206
  3. CRESTOR [Concomitant]
     Dosage: 2.5 MG
     Route: 065
     Dates: start: 20111206
  4. RANITIDINE [Concomitant]
     Dosage: 100 MG
     Route: 065

REACTIONS (1)
  - Rash [Not Recovered/Not Resolved]
